FAERS Safety Report 15844315 (Version 2)
Quarter: 2019Q1

REPORT INFORMATION
  Report Type: Spontaneous
  Country: ES (occurrence: ES)
  Receive Date: 20190118
  Receipt Date: 20190122
  Transmission Date: 20190417
  Serious: Yes (Other)
  Sender: FDA-Public Use
  Company Number: PHHY2019ES005921

PATIENT
  Age: 69 Year
  Sex: Female

DRUGS (3)
  1. KISQALI [Suspect]
     Active Substance: RIBOCICLIB
     Indication: BREAST CANCER
     Dosage: 600 MG, QD (EVERY 24 HOURS (FOR 21 DAYS))
     Route: 048
     Dates: start: 20181128, end: 20181212
  2. LETROZOLE. [Suspect]
     Active Substance: LETROZOLE
     Indication: BREAST CANCER
     Dosage: UNK
     Route: 065
     Dates: start: 20181128
  3. KISQALI [Suspect]
     Active Substance: RIBOCICLIB
     Dosage: 600 MG, QD (EVERY 24 HOURS (FOR 21 DAYS))
     Route: 048
     Dates: start: 20181224, end: 20190109

REACTIONS (3)
  - Renal disorder [Unknown]
  - Renal impairment [Unknown]
  - Blood creatinine increased [Unknown]
